FAERS Safety Report 9698786 (Version 2)
Quarter: 2014Q1

REPORT INFORMATION
  Report Type: Spontaneous
  Country: US (occurrence: US)
  Receive Date: 20131120
  Receipt Date: 20140128
  Transmission Date: 20141002
  Serious: Yes (Other)
  Sender: FDA-Public Use
  Company Number: US-PFIZER INC-2013330290

PATIENT
  Age: 70 Year
  Sex: Female
  Weight: 84.81 kg

DRUGS (1)
  1. LYRICA [Suspect]
     Indication: FIBROMYALGIA
     Dosage: 100 MG, 2X/DAY
     Route: 048
     Dates: end: 201311

REACTIONS (7)
  - Hernia [Unknown]
  - Gastrointestinal disorder [Unknown]
  - Oesophageal disorder [Unknown]
  - Arthralgia [Unknown]
  - Pain [Unknown]
  - Feeling abnormal [Unknown]
  - Weight decreased [Unknown]
